FAERS Safety Report 5151563-2 (Version None)
Quarter: 2006Q4

REPORT INFORMATION
  Report Type: 
  Country: None (occurrence: None)
  Receive Date: 20061109
  Receipt Date: 20061027
  Transmission Date: 20070319
  Serious: Yes (Hospitalization)
  Sender: FDA-Public Use
  Company Number: 2006BI015582

PATIENT
  Age: 50 Year
  Sex: Female
  Weight: 65.7716 kg

DRUGS (4)
  1. AVONEX [Suspect]
     Indication: MULTIPLE SCLEROSIS
     Dosage: 30 UG; QW; IM
     Route: 030
     Dates: start: 20010101, end: 20060801
  2. BLOOD PRESSURE MEDICATION [Concomitant]
  3. THYROID TAB [Concomitant]
  4. CHOLESTEROL MEDICATION [Concomitant]

REACTIONS (2)
  - CEREBROVASCULAR ACCIDENT [None]
  - WEIGHT DECREASED [None]
